FAERS Safety Report 24371590 (Version 1)
Quarter: 2024Q3

REPORT INFORMATION
  Report Type: Spontaneous
  Country: CA (occurrence: CA)
  Receive Date: 20240927
  Receipt Date: 20240927
  Transmission Date: 20241016
  Serious: Yes (Hospitalization)
  Sender: TEVA
  Company Number: CA-TEVA-VS-3245847

PATIENT
  Age: 83 Year
  Sex: Male

DRUGS (1)
  1. BISOPROLOL [Suspect]
     Active Substance: BISOPROLOL\BISOPROLOL FUMARATE
     Indication: Product used for unknown indication
     Dosage: DESCRIPTION: TEVA-BISOPROLOL
     Route: 065

REACTIONS (4)
  - Bradycardia [Recovering/Resolving]
  - Hyperkalaemia [Recovering/Resolving]
  - BRASH syndrome [Recovering/Resolving]
  - Renal failure [Recovering/Resolving]
